FAERS Safety Report 9227647 (Version 1)
Quarter: 2013Q2

REPORT INFORMATION
  Report Type: Spontaneous
  Country: BR (occurrence: BR)
  Receive Date: 20130412
  Receipt Date: 20130412
  Transmission Date: 20140414
  Serious: Yes (Hospitalization)
  Sender: FDA-Public Use
  Company Number: BR-SANOFI-AVENTIS-2013SA036819

PATIENT
  Age: 13 Year
  Sex: Female
  Weight: 57 kg

DRUGS (4)
  1. LANTUS [Suspect]
     Indication: TYPE 1 DIABETES MELLITUS
     Route: 058
     Dates: start: 2011
  2. DEVICE NOS [Concomitant]
     Indication: DEVICE THERAPY
  3. HUMALOG [Concomitant]
     Indication: ILL-DEFINED DISORDER
     Dosage: 6-7 IU AFTER EACH MEAL
     Route: 058
  4. PURAN T4 [Concomitant]
     Indication: HYPOTHYROIDISM
     Route: 048
     Dates: start: 2006

REACTIONS (2)
  - Ketoacidosis [Not Recovered/Not Resolved]
  - Hyperglycaemia [Not Recovered/Not Resolved]
